FAERS Safety Report 14066952 (Version 4)
Quarter: 2020Q3

REPORT INFORMATION
  Report Type: Spontaneous
  Country: US (occurrence: US)
  Receive Date: 20171009
  Receipt Date: 20200813
  Transmission Date: 20201102
  Serious: Yes (Other)
  Sender: FDA-Public Use
  Company Number: US-NAPPMUNDI-USA-2017-0141034

PATIENT
  Age: 61 Year
  Sex: Male
  Weight: 54.42 kg

DRUGS (5)
  1. OXYCODONE HYDROCHLORIDE (SIMILAR TO NDA 22?272) [Suspect]
     Active Substance: OXYCODONE HYDROCHLORIDE
     Indication: NEURALGIA
  2. OXYCODONE HYDROCHLORIDE (SIMILAR TO NDA 22?272) [Suspect]
     Active Substance: OXYCODONE HYDROCHLORIDE
     Indication: PROCEDURAL PAIN
  3. OXYCODONE HYDROCHLORIDE (SIMILAR TO NDA 22?272) [Suspect]
     Active Substance: OXYCODONE HYDROCHLORIDE
     Indication: PAIN
     Dosage: 10 MG, UNK
     Route: 048
     Dates: start: 20070730, end: 20170928
  4. HYDROCODONE BITARTRATE (SIMILAR TO NDA 206627) [Suspect]
     Active Substance: HYDROCODONE BITARTRATE
     Indication: PRODUCT USED FOR UNKNOWN INDICATION
     Dosage: UNK
     Route: 048
  5. HYDROMORPHONE HCL (SIMILAR TO 19?892) [Suspect]
     Active Substance: HYDROMORPHONE HYDROCHLORIDE
     Indication: PRODUCT USED FOR UNKNOWN INDICATION
     Dosage: UNK
     Route: 048

REACTIONS (19)
  - Vein collapse [Unknown]
  - Knee operation [Unknown]
  - Flushing [Recovered/Resolved]
  - Psychomotor hyperactivity [Recovered/Resolved]
  - Swelling face [Recovered/Resolved]
  - Shoulder operation [Unknown]
  - Drug tolerance [Unknown]
  - Neck pain [Not Recovered/Not Resolved]
  - Wrong technique in product usage process [Recovered/Resolved]
  - Pulmonary embolism [Not Recovered/Not Resolved]
  - Hip surgery [Unknown]
  - Ocular hyperaemia [Recovered/Resolved]
  - Drug dependence [Unknown]
  - Multiple organ dysfunction syndrome [Unknown]
  - Peripheral embolism [Not Recovered/Not Resolved]
  - Road traffic accident [Unknown]
  - Intentional product use issue [Recovered/Resolved]
  - Inadequate analgesia [Unknown]
  - Intervertebral disc degeneration [Not Recovered/Not Resolved]

NARRATIVE: CASE EVENT DATE: 20170515
